FAERS Safety Report 5487960-5 (Version None)
Quarter: 2007Q4

REPORT INFORMATION
  Report Type: 
  Country: None (occurrence: None)
  Receive Date: 20071012
  Receipt Date: 20071012
  Transmission Date: 20080405
  Serious: Yes (Hospitalization)
  Sender: FDA-Public Use
  Company Number: None

PATIENT
  Sex: Male
  Weight: 133 kg

DRUGS (1)
  1. SUNITINIB [Suspect]
     Indication: COLON CANCER
     Dosage: 25 MG DAILY PO
     Route: 048
     Dates: start: 20071003, end: 20071005

REACTIONS (1)
  - SMALL INTESTINAL OBSTRUCTION [None]
